FAERS Safety Report 9436885 (Version 1)
Quarter: 2013Q3

REPORT INFORMATION
  Report Type: Spontaneous
  Country: US (occurrence: US)
  Receive Date: 20130802
  Receipt Date: 20130802
  Transmission Date: 20140515
  Serious: No
  Sender: FDA-Public Use
  Company Number: US-PFIZER INC-2013225209

PATIENT
  Sex: Female

DRUGS (1)
  1. LYRICA [Suspect]
     Dosage: 50 MG DAILY
     Route: 048
     Dates: start: 20130729, end: 20130730

REACTIONS (3)
  - Activities of daily living impaired [Unknown]
  - Feeling abnormal [Unknown]
  - Somnolence [Unknown]
